FAERS Safety Report 7381815-7 (Version None)
Quarter: 2011Q1

REPORT INFORMATION
  Report Type: 
  Country: None (occurrence: None)
  Receive Date: 20110329
  Receipt Date: 20110315
  Transmission Date: 20110831
  Serious: Yes (Other)
  Sender: FDA-Public Use
  Company Number: PHHY2011NL21580

PATIENT
  Age: 40 Year
  Sex: Female

DRUGS (3)
  1. AZATHIOPRINE [Suspect]
     Dosage: 2MG/KG, DAILY
     Route: 048
  2. PREDNISONE [Suspect]
     Dosage: 40 MG, QD
     Route: 048
  3. MESALAMINE [Concomitant]

REACTIONS (10)
  - PYREXIA [None]
  - COUGH [None]
  - TACHYCARDIA [None]
  - ALANINE AMINOTRANSFERASE INCREASED [None]
  - ASPARTATE AMINOTRANSFERASE INCREASED [None]
  - PNEUMONITIS [None]
  - DYSPNOEA [None]
  - WHITE BLOOD CELL COUNT DECREASED [None]
  - C-REACTIVE PROTEIN INCREASED [None]
  - MEAN CELL HAEMOGLOBIN CONCENTRATION [None]
